FAERS Safety Report 18010319 (Version 7)
Quarter: 2020Q4

REPORT INFORMATION
  Report Type: Spontaneous
  Country: LT (occurrence: LT)
  Receive Date: 20200710
  Receipt Date: 20201110
  Transmission Date: 20210113
  Serious: Yes (Hospitalization, Other)
  Sender: FDA-Public Use
  Company Number: NVSC2020LT182621

PATIENT
  Age: 55 Year
  Sex: Female

DRUGS (13)
  1. METHYLPREDNISOLONE. [Suspect]
     Active Substance: METHYLPREDNISOLONE
     Dosage: GLUCOCORTICOIDS TREATMENT WAS RENEWED
     Route: 065
  2. CEFTAZIDIME. [Suspect]
     Active Substance: CEFTAZIDIME
     Indication: IMMUNOSUPPRESSANT DRUG THERAPY
     Dosage: UNK
     Route: 042
  3. PARACETAMOL [Concomitant]
     Active Substance: ACETAMINOPHEN
     Indication: PRODUCT USED FOR UNKNOWN INDICATION
     Dosage: UNK
     Route: 065
  4. INFLIXIMAB [Suspect]
     Active Substance: INFLIXIMAB
     Indication: RHEUMATOID ARTHRITIS
     Dosage: 3 MG/KG, TWO COURSES
     Route: 065
     Dates: start: 20200619, end: 20200624
  5. INFLIXIMAB [Suspect]
     Active Substance: INFLIXIMAB
     Dosage: 3 MG / KG
     Route: 065
     Dates: start: 20190611, end: 20190724
  6. PLAQUENIL [Suspect]
     Active Substance: HYDROXYCHLOROQUINE SULFATE
     Indication: RHEUMATOID ARTHRITIS
     Dosage: 200 MG, BID
     Route: 065
  7. TRANDOLAPRIL. [Suspect]
     Active Substance: TRANDOLAPRIL
     Indication: HYPERTENSION
     Dosage: UNK (240MG/4MG)
     Route: 065
  8. METHYLPREDNISOLONE. [Suspect]
     Active Substance: METHYLPREDNISOLONE
     Indication: RHEUMATOID ARTHRITIS
     Dosage: 12 MG, QD
     Route: 065
  9. LORNOXICAM [Suspect]
     Active Substance: LORNOXICAM
     Indication: RHEUMATOID ARTHRITIS
     Dosage: 8 MG, BID
     Route: 065
  10. METHOTREXATE. [Suspect]
     Active Substance: METHOTREXATE
     Indication: RHEUMATOID ARTHRITIS
     Dosage: 15 MG, QW, DOSE WAS INCREASED TO 15 MG PER WEEK
     Route: 065
  11. METHYLPREDNISOLONE. [Suspect]
     Active Substance: METHYLPREDNISOLONE
     Dosage: REDUCED DOSE
     Route: 065
  12. FOLIC ACID. [Suspect]
     Active Substance: FOLIC ACID
     Indication: RHEUMATOID ARTHRITIS
     Dosage: VERAPAMIL/TRANDOLAPRIL 240 MG/4 MG, QD
     Route: 065
  13. MANNITOL. [Concomitant]
     Active Substance: MANNITOL
     Indication: PRODUCT USED FOR UNKNOWN INDICATION
     Dosage: UNK
     Route: 065

REACTIONS (33)
  - Somnolence [Recovering/Resolving]
  - Disorientation [Recovering/Resolving]
  - Transaminases increased [Unknown]
  - Normochromic normocytic anaemia [Recovering/Resolving]
  - Thrombocytopenia [Recovering/Resolving]
  - Encephalitis viral [Recovering/Resolving]
  - Anaemia [Unknown]
  - Rheumatoid arthritis [Unknown]
  - Neurological symptom [Unknown]
  - Osteoporosis [Unknown]
  - Dysarthria [Recovering/Resolving]
  - Bradyphrenia [Recovering/Resolving]
  - Blepharospasm [Recovering/Resolving]
  - Nausea [Recovering/Resolving]
  - Rebound effect [Unknown]
  - Drug-induced liver injury [Unknown]
  - Pyrexia [Recovering/Resolving]
  - Movement disorder [Recovering/Resolving]
  - Dizziness [Recovering/Resolving]
  - Drug ineffective [Unknown]
  - Coordination abnormal [Recovering/Resolving]
  - Vomiting [Recovering/Resolving]
  - Leukopenia [Recovered/Resolved]
  - Drug intolerance [Unknown]
  - Asthenia [Recovering/Resolving]
  - Ataxia [Recovering/Resolving]
  - Tick-borne viral encephalitis [Recovered/Resolved]
  - Aphasia [Recovering/Resolving]
  - Balance disorder [Recovering/Resolving]
  - Pancytopenia [Recovering/Resolving]
  - Headache [Recovering/Resolving]
  - Chills [Recovering/Resolving]
  - Brain oedema [Recovering/Resolving]
